FAERS Safety Report 24527657 (Version 1)
Quarter: 2024Q4

REPORT INFORMATION
  Report Type: Spontaneous
  Country: US (occurrence: US)
  Receive Date: 20241021
  Receipt Date: 20241021
  Transmission Date: 20250114
  Serious: No
  Sender: AMNEAL
  Company Number: US-AMNEAL PHARMACEUTICALS-2024-AMRX-03178

PATIENT
  Age: 22 Year
  Sex: Female

DRUGS (2)
  1. PROGESTERONE [Suspect]
     Active Substance: PROGESTERONE
     Indication: Hormone level abnormal
     Dosage: UNK
     Route: 048
  2. ESTROGENS [Suspect]
     Active Substance: ESTROGENS
     Indication: Hormone level abnormal
     Dosage: UNK
     Route: 048

REACTIONS (5)
  - Hyperactive pharyngeal reflex [Unknown]
  - Drug ineffective [Unknown]
  - Drug intolerance [Unknown]
  - Vomiting [Unknown]
  - Product use issue [Unknown]
